FAERS Safety Report 9607251 (Version 3)
Quarter: 2013Q4

REPORT INFORMATION
  Report Type: Spontaneous
  Country: US (occurrence: US)
  Receive Date: 20131009
  Receipt Date: 20131115
  Transmission Date: 20140711
  Serious: Yes (Death, Life-Threatening, Hospitalization, Disabling, Other)
  Sender: FDA-Public Use
  Company Number: US-009507513-1310USA000834

PATIENT
  Age: 81 Year
  Sex: Female
  Weight: 42.3 kg

DRUGS (4)
  1. TEMODAR [Suspect]
     Indication: NEOPLASM MALIGNANT
     Dosage: UNK
     Route: 048
     Dates: start: 201307, end: 2013
  2. ASPIRIN [Concomitant]
     Dosage: DAILY DOSE: 32.5MG
     Route: 048
  3. PRILOSEC [Concomitant]
     Dosage: DAILY DOSE: 20MG
     Route: 048
  4. ZENPEP [Concomitant]
     Dosage: DAILY DOSE: 10000
     Route: 048

REACTIONS (7)
  - Neuroendocrine carcinoma metastatic [Fatal]
  - Cardiopulmonary failure [Fatal]
  - Dehydration [Not Recovered/Not Resolved]
  - Asthenia [Not Recovered/Not Resolved]
  - Lethargy [Not Recovered/Not Resolved]
  - Pneumonia [Not Recovered/Not Resolved]
  - Thrombosis [Not Recovered/Not Resolved]
